FAERS Safety Report 7465007-9 (Version None)
Quarter: 2011Q2

REPORT INFORMATION
  Report Type: 
  Country: None (occurrence: None)
  Receive Date: 20110505
  Receipt Date: 20110505
  Transmission Date: 20111010
  Serious: Yes (Other)
  Sender: FDA-Public Use
  Company Number: None

PATIENT
  Age: 35 Year
  Sex: Male
  Weight: 84.1 kg

DRUGS (5)
  1. CIPROFLOXACIN [Suspect]
     Indication: EPIDIDYMITIS
     Dosage: 500MG 2 TIMES DAILY ORAL
     Route: 048
     Dates: start: 20110310, end: 20110313
  2. PREVACID [Concomitant]
  3. ATENOLOL [Concomitant]
  4. ACETAMINOPHEN [Concomitant]
  5. NAPROXEN (ALEVE) [Concomitant]

REACTIONS (12)
  - JOINT CREPITATION [None]
  - ASTHENIA [None]
  - MALAISE [None]
  - MUSCULAR WEAKNESS [None]
  - PAIN IN EXTREMITY [None]
  - ANXIETY [None]
  - ARTHRALGIA [None]
  - NEUROPATHY PERIPHERAL [None]
  - TINNITUS [None]
  - TREMOR [None]
  - MUSCLE TWITCHING [None]
  - FAILURE TO THRIVE [None]
